FAERS Safety Report 9544014 (Version 1)
Quarter: 2013Q3

REPORT INFORMATION
  Report Type: Spontaneous
  Country: SE (occurrence: SE)
  Receive Date: 20130923
  Receipt Date: 20130923
  Transmission Date: 20140515
  Serious: Yes (Other)
  Sender: FDA-Public Use
  Company Number: SE-009507513-1212SWE001974

PATIENT
  Sex: Female

DRUGS (1)
  1. DIPRODERM [Suspect]
     Indication: EAR INFECTION
     Dosage: UNK
     Dates: start: 20121201

REACTIONS (2)
  - Hearing impaired [Unknown]
  - Drug ineffective [Unknown]
